FAERS Safety Report 20818615 (Version 3)
Quarter: 2022Q3

REPORT INFORMATION
  Report Type: Spontaneous
  Country: JP (occurrence: JP)
  Receive Date: 20220512
  Receipt Date: 20220808
  Transmission Date: 20221026
  Serious: No
  Sender: FDA-Public Use
  Company Number: JP-GLAXOSMITHKLINE-JP2022JPN076568

PATIENT

DRUGS (10)
  1. SOTROVIMAB [Suspect]
     Active Substance: SOTROVIMAB
     Indication: COVID-19
     Dosage: 500 MG/DAY
     Route: 042
     Dates: start: 20220506, end: 20220506
  2. LEVOTHYROXINE SODIUM [Suspect]
     Active Substance: LEVOTHYROXINE SODIUM
     Indication: Hypothyroidism
     Dosage: 100 ?G/DAY TO 112.5 ?G/DAY
     Route: 048
     Dates: end: 20220608
  3. CALONAL [Suspect]
     Active Substance: ACETAMINOPHEN
     Indication: Headache
     Dosage: 1500 MG/DAY
     Route: 048
     Dates: start: 20220128
  4. CLARITIN REDITABS [Suspect]
     Active Substance: LORATADINE
     Indication: Seasonal allergy
     Dosage: 10 MG/DAY
     Route: 048
     Dates: start: 20220407
  5. DIFLUCORTOLONE VALERATE\LIDOCAINE [Suspect]
     Active Substance: DIFLUCORTOLONE VALERATE\LIDOCAINE
     Indication: Haemorrhoids
     Dosage: UNK
     Dates: start: 20220423
  6. DEXTROMETHORPHAN HYDROBROMIDE [Suspect]
     Active Substance: DEXTROMETHORPHAN HYDROBROMIDE
     Indication: Cough
     Dosage: 45 MG/DAY
     Route: 048
     Dates: start: 20220507
  7. CARBOCYSTEINE [Suspect]
     Active Substance: CARBOCYSTEINE
     Indication: Productive cough
     Dosage: 1500 MG/DAY
     Route: 048
     Dates: start: 20220507
  8. RINDERON V [Suspect]
     Active Substance: BETAMETHASONE VALERATE
     Indication: Eczema
     Dosage: UNK
     Dates: start: 20220513
  9. DIFLUCORTOLONE VALERATE\LIDOCAINE [Suspect]
     Active Substance: DIFLUCORTOLONE VALERATE\LIDOCAINE
     Indication: Haemorrhoids
     Dosage: UNK
     Dates: start: 20220513
  10. FERROUS SULFATE [Suspect]
     Active Substance: FERROUS SULFATE
     Indication: Anaemia
     Dosage: 105 MG/DAY
     Route: 048
     Dates: start: 20220601, end: 20220607

REACTIONS (2)
  - Caesarean section [Unknown]
  - Exposure during pregnancy [Unknown]

NARRATIVE: CASE EVENT DATE: 20220608
